FAERS Safety Report 9330316 (Version 1)
Quarter: 2013Q2

REPORT INFORMATION
  Report Type: Report from Study
  Country: CA (occurrence: CA)
  Receive Date: 20130605
  Receipt Date: 20130605
  Transmission Date: 20140414
  Serious: Yes (Other)
  Sender: FDA-Public Use
  Company Number: CA-ROCHE-1232374

PATIENT
  Age: 30 Year
  Sex: Male

DRUGS (3)
  1. PEGASYS [Suspect]
     Indication: HEPATITIS C
     Route: 065
     Dates: end: 201304
  2. RIBAVIRIN [Suspect]
     Indication: HEPATITIS C
     Route: 065
     Dates: end: 20130402
  3. INCIVEK [Suspect]
     Indication: HEPATITIS C
     Route: 065
     Dates: end: 201304

REACTIONS (2)
  - Abnormal behaviour [Unknown]
  - Rash [Unknown]
